FAERS Safety Report 21799286 (Version 1)
Quarter: 2022Q4

REPORT INFORMATION
  Report Type: Spontaneous
  Country: GB (occurrence: GB)
  Receive Date: 20221230
  Receipt Date: 20221230
  Transmission Date: 20230113
  Serious: Yes (Hospitalization)
  Sender: FDA-Public Use
  Company Number: GB-HALEON-GBCH2022GSK052548

PATIENT

DRUGS (1)
  1. SCOPOLAMINE HYDROBROMIDE [Suspect]
     Active Substance: SCOPOLAMINE HYDROBROMIDE
     Indication: Salivary hypersecretion
     Dosage: 1 MG (1 MILLIGRAM EVERY 72 HOURS APPLY ONE PATCH AS DIRECTED, CHANGE EVERY 72 HOURS)
     Route: 061
     Dates: start: 20221207, end: 20221213

REACTIONS (5)
  - Disorientation [Unknown]
  - Dehydration [Unknown]
  - Muscular weakness [Unknown]
  - Confusional state [Unknown]
  - Off label use [Unknown]
